FAERS Safety Report 13759580 (Version 2)
Quarter: 2017Q3

REPORT INFORMATION
  Report Type: Spontaneous
  Country: US (occurrence: US)
  Receive Date: 20170717
  Receipt Date: 20170726
  Transmission Date: 20171127
  Serious: Yes (Death, Other)
  Sender: FDA-Public Use
  Company Number: US-009507513-1707USA002392

PATIENT
  Age: 87 Year
  Sex: Male

DRUGS (1)
  1. KEYTRUDA [Suspect]
     Active Substance: PEMBROLIZUMAB
     Dosage: ONE DOSE

REACTIONS (5)
  - Expired product administered [Unknown]
  - Product storage error [Unknown]
  - Malignant neoplasm progression [Unknown]
  - Death [Fatal]
  - Pain [Unknown]
